FAERS Safety Report 15208070 (Version 3)
Quarter: 2018Q3

REPORT INFORMATION
  Report Type: Spontaneous
  Country: US (occurrence: US)
  Receive Date: 20180727
  Receipt Date: 20180917
  Transmission Date: 20181010
  Serious: Yes (Hospitalization)
  Sender: FDA-Public Use
  Company Number: US-PFIZER INC-2018297668

PATIENT
  Age: 33 Year
  Sex: Male

DRUGS (2)
  1. HEROIN [Interacting]
     Active Substance: DIAMORPHINE
     Dosage: UNK (INJECTED HEROIN EARLIER IN THE EVENING)
  2. GABAPENTIN. [Suspect]
     Active Substance: GABAPENTIN
     Dosage: 7 DF, SINGLE (TAKING 7 TABLETS OF GABAPENTIN PRIOR TO USING HEROIN)

REACTIONS (7)
  - Drug abuse [Unknown]
  - Bradypnoea [Recovering/Resolving]
  - Depressed level of consciousness [Unknown]
  - Somnolence [Unknown]
  - Hypoxia [Recovering/Resolving]
  - Pulmonary oedema [Unknown]
  - Drug interaction [Unknown]
